FAERS Safety Report 4971390-6 (Version None)
Quarter: 2006Q2

REPORT INFORMATION
  Report Type: 
  Country: None (occurrence: None)
  Receive Date: 20060406
  Receipt Date: 20060317
  Transmission Date: 20061013
  Serious: No
  Sender: FDA-Public Use
  Company Number: MX200603005256

PATIENT
  Age: 44 Year
  Sex: Male
  Weight: 72 kg

DRUGS (3)
  1. CIALIS [Suspect]
     Indication: ERECTION INCREASED
     Dosage: 20 MG ORAL
     Route: 048
     Dates: start: 20051201
  2. ALPRAZOLAM [Concomitant]
  3. ASPIRIN [Concomitant]

REACTIONS (2)
  - SWELLING FACE [None]
  - VISION BLURRED [None]
